FAERS Safety Report 6901244-7 (Version None)
Quarter: 2010Q3

REPORT INFORMATION
  Report Type: 
  Country: None (occurrence: None)
  Receive Date: 20100803
  Receipt Date: 20100728
  Transmission Date: 20110219
  Serious: Yes (Hospitalization, Other)
  Sender: FDA-Public Use
  Company Number: PR-ABBOTT-10P-131-0657089-00

PATIENT
  Sex: Female
  Weight: 103.51 kg

DRUGS (11)
  1. HUMIRA [Suspect]
     Indication: RHEUMATOID ARTHRITIS
     Route: 058
     Dates: start: 20080101, end: 20091001
  2. CORTICOSTEROIDS [Concomitant]
     Indication: ASTHMA
  3. DEPO-MEDROL [Concomitant]
     Indication: BURSITIS
     Route: 050
     Dates: start: 20090901
  4. NEURONTIN [Concomitant]
     Indication: NEUROPATHY PERIPHERAL
     Route: 048
  5. TEGRETOL [Concomitant]
     Indication: EPILEPSY
     Route: 048
  6. METHOTREXATE [Concomitant]
     Indication: RHEUMATOID ARTHRITIS
     Route: 048
  7. LEUCOVORIN CALCIUM [Concomitant]
     Indication: PRODUCT USED FOR UNKNOWN INDICATION
  8. KEPPRA [Concomitant]
     Indication: EPILEPSY
  9. CLARINEX [Concomitant]
     Indication: PRODUCT USED FOR UNKNOWN INDICATION
     Route: 048
  10. ALLEGRA [Concomitant]
     Indication: PRODUCT USED FOR UNKNOWN INDICATION
     Route: 048
  11. ORENCIA [Concomitant]
     Indication: RHEUMATOID ARTHRITIS
     Route: 042

REACTIONS (3)
  - JOINT SWELLING [None]
  - MYOCARDIAL INFARCTION [None]
  - PULMONARY EMBOLISM [None]
